FAERS Safety Report 22220391 (Version 2)
Quarter: 2023Q2

REPORT INFORMATION
  Report Type: Spontaneous
  Country: JP (occurrence: JP)
  Receive Date: 20230417
  Receipt Date: 20230607
  Transmission Date: 20230721
  Serious: Yes (Hospitalization, Other)
  Sender: FDA-Public Use
  Company Number: JP-MSD-2304JPN001784J

PATIENT
  Age: 6 Decade
  Sex: Male

DRUGS (15)
  1. ISENTRESS [Suspect]
     Active Substance: RALTEGRAVIR POTASSIUM
     Indication: HIV infection
     Dosage: 800 MILLIGRAM/DAY
     Route: 048
     Dates: start: 20170313
  2. DESCOVY [Concomitant]
     Active Substance: EMTRICITABINE\TENOFOVIR ALAFENAMIDE FUMARATE
     Indication: HIV infection
     Dosage: 1 DOSAGE FORM
     Route: 048
     Dates: start: 20170313
  3. DESYREL [Concomitant]
     Active Substance: TRAZODONE HYDROCHLORIDE
     Indication: Disease complication
     Dosage: UNK
     Route: 065
     Dates: start: 20160401
  4. ADALAT [Concomitant]
     Active Substance: NIFEDIPINE
     Indication: Disease complication
     Dosage: UNK
     Route: 048
     Dates: start: 20160401
  5. PAXIL [Concomitant]
     Active Substance: PAROXETINE HYDROCHLORIDE
     Indication: Disease complication
     Dosage: UNK
     Route: 065
     Dates: start: 20160401
  6. CRESTOR [Concomitant]
     Active Substance: ROSUVASTATIN CALCIUM
     Indication: Disease complication
     Dosage: UNK
     Route: 065
     Dates: start: 20160401
  7. ZOPICLONE [Concomitant]
     Active Substance: ZOPICLONE
     Indication: Disease complication
     Dosage: UNK
     Route: 065
     Dates: start: 20160401
  8. EPERISONE HYDROCHLORIDE [Concomitant]
     Active Substance: EPERISONE HYDROCHLORIDE
     Indication: Disease complication
     Dosage: UNK
     Route: 065
     Dates: start: 20160401
  9. EPERISONE HYDROCHLORIDE [Concomitant]
     Active Substance: EPERISONE HYDROCHLORIDE
     Indication: Prophylaxis
  10. ZOLPIDEM TARTRATE [Concomitant]
     Active Substance: ZOLPIDEM TARTRATE
     Indication: Disease complication
     Dosage: UNK
     Route: 065
     Dates: start: 20160401
  11. ALESION [Concomitant]
     Active Substance: EPINASTINE HYDROCHLORIDE
     Indication: Prophylaxis
     Dosage: UNK
     Route: 065
     Dates: start: 20170401
  12. METGLUCO [Concomitant]
     Active Substance: METFORMIN HYDROCHLORIDE
     Indication: Disease complication
     Dosage: UNK
     Route: 048
     Dates: start: 20190313
  13. CANAGLIFLOZIN\TENELIGLIPTIN [Concomitant]
     Active Substance: CANAGLIFLOZIN\TENELIGLIPTIN
     Indication: Disease complication
     Dosage: UNK
     Route: 048
     Dates: start: 20190313
  14. GASTER [Concomitant]
     Active Substance: FAMOTIDINE
     Indication: Chemotherapy side effect prophylaxis
     Dosage: UNK
     Route: 065
     Dates: start: 20160401, end: 20190313
  15. GASTER [Concomitant]
     Active Substance: FAMOTIDINE
     Dosage: UNK
     Route: 065
     Dates: start: 20200511

REACTIONS (2)
  - Angina pectoris [Recovering/Resolving]
  - Intervertebral disc protrusion [Recovering/Resolving]

NARRATIVE: CASE EVENT DATE: 20220314
